FAERS Safety Report 17855136 (Version 4)
Quarter: 2020Q2

REPORT INFORMATION
  Report Type: Spontaneous
  Country: US (occurrence: US)
  Receive Date: 20200603
  Receipt Date: 20200612
  Transmission Date: 20200714
  Serious: Yes (Other)
  Sender: FDA-Public Use
  Company Number: US-PFIZER INC-2020212832

PATIENT
  Age: 69 Year
  Sex: Male
  Weight: 93.17 kg

DRUGS (1)
  1. XALKORI [Suspect]
     Active Substance: CRIZOTINIB
     Indication: PHARYNGEAL CANCER
     Dosage: 250 MG, 2X/DAY
     Route: 048
     Dates: start: 202005

REACTIONS (3)
  - Dysphagia [Unknown]
  - Off label use [Unknown]
  - Product use in unapproved indication [Unknown]

NARRATIVE: CASE EVENT DATE: 202005
